FAERS Safety Report 23442702 (Version 1)
Quarter: 2024Q1

REPORT INFORMATION
  Report Type: Spontaneous
  Country: US (occurrence: US)
  Receive Date: 20240125
  Receipt Date: 20240125
  Transmission Date: 20240409
  Serious: No
  Sender: FDA-Public Use
  Company Number: US-BRISTOL-MYERS SQUIBB COMPANY-2024-012512

PATIENT
  Age: 72 Year
  Sex: Male

DRUGS (1)
  1. SPRYCEL [Suspect]
     Active Substance: DASATINIB
     Indication: Malabsorption
     Route: 048
     Dates: start: 202201

REACTIONS (7)
  - Blister [Unknown]
  - Lip swelling [Unknown]
  - Eye irritation [Unknown]
  - Rash [Unknown]
  - Decreased appetite [Unknown]
  - Fatigue [Unknown]
  - Off label use [Unknown]
